FAERS Safety Report 7332216-9 (Version None)
Quarter: 2011Q1

REPORT INFORMATION
  Report Type: 
  Country: None (occurrence: None)
  Receive Date: 20110304
  Receipt Date: 20110224
  Transmission Date: 20110831
  Serious: Yes (Hospitalization)
  Sender: FDA-Public Use
  Company Number: DE-ROCHE-725437

PATIENT
  Sex: Female
  Weight: 47 kg

DRUGS (10)
  1. RAMIPRIL [Concomitant]
     Dosage: TDD:1DF/D
  2. BEVACIZUMAB [Suspect]
     Indication: NON-SMALL CELL LUNG CANCER
     Dosage: FORM :INFUSION LAST DOSE PRIOR TO SAE 19 JUL 2010
     Route: 042
     Dates: start: 20100423
  3. PEMETREXED [Suspect]
     Indication: NON-SMALL CELL LUNG CANCER
     Route: 065
  4. PERENTEROL [Concomitant]
     Dosage: TDD:2XCAPSULE 4DF/D
  5. BEVACIZUMAB [Suspect]
     Dosage: PERMANATLY DISCONTINUED
     Route: 042
     Dates: end: 20100913
  6. MST [Concomitant]
     Dosage: 10 MG 2DF/D
  7. CARBOPLATIN [Suspect]
     Indication: NON-SMALL CELL LUNG CANCER
     Route: 065
  8. BISOPROLOL FUMARATE [Concomitant]
     Dosage: TDD:1DF/D
  9. MARCUMAR [Concomitant]
  10. ASS 100 [Concomitant]
     Dosage: 1DF/D

REACTIONS (3)
  - VOMITING [None]
  - ARTERIAL OCCLUSIVE DISEASE [None]
  - GENERAL PHYSICAL HEALTH DETERIORATION [None]
